FAERS Safety Report 23744355 (Version 1)
Quarter: 2024Q2

REPORT INFORMATION
  Report Type: Spontaneous
  Country: CN (occurrence: CN)
  Receive Date: 20240415
  Receipt Date: 20240415
  Transmission Date: 20240716
  Serious: Yes (Hospitalization)
  Sender: FDA-Public Use
  Company Number: CN-Eisai-EC-2024-163421

PATIENT
  Age: 7 Year
  Sex: Female

DRUGS (1)
  1. PERAMPANEL [Suspect]
     Active Substance: PERAMPANEL
     Indication: Accidental exposure to product by child
     Dosage: UNKNOWN DOSE
     Route: 048
     Dates: start: 20240406, end: 20240406

REACTIONS (7)
  - Mania [Not Recovered/Not Resolved]
  - Affect lability [Not Recovered/Not Resolved]
  - Repetitive speech [Not Recovered/Not Resolved]
  - Restlessness [Not Recovered/Not Resolved]
  - Coma [Unknown]
  - Discomfort [Unknown]
  - Accidental exposure to product by child [Not Recovered/Not Resolved]

NARRATIVE: CASE EVENT DATE: 20240406
